FAERS Safety Report 13694840 (Version 5)
Quarter: 2018Q1

REPORT INFORMATION
  Report Type: Spontaneous
  Country: JP (occurrence: JP)
  Receive Date: 20170627
  Receipt Date: 20180213
  Transmission Date: 20180508
  Serious: Yes (Death, Hospitalization)
  Sender: FDA-Public Use
  Company Number: JP-JNJFOC-20170623904

PATIENT
  Age: 83 Year
  Sex: Male

DRUGS (12)
  1. SELBEX [Concomitant]
     Active Substance: TEPRENONE
     Indication: GASTRITIS
     Route: 048
  2. HUMIRA [Concomitant]
     Active Substance: ADALIMUMAB
     Route: 065
     Dates: start: 201107, end: 201111
  3. TRAMACET [Concomitant]
     Active Substance: ACETAMINOPHEN\TRAMADOL
     Route: 048
     Dates: start: 201704
  4. PREDONINE [Suspect]
     Active Substance: PREDNISOLONE
     Indication: POLYMYALGIA RHEUMATICA
     Route: 048
     Dates: start: 2005
  5. REMICADE [Suspect]
     Active Substance: INFLIXIMAB
     Indication: PUSTULAR PSORIASIS
     Dosage: 16TH DOSE
     Route: 042
     Dates: start: 20170116, end: 20170116
  6. BAKTAR [Concomitant]
     Active Substance: SULFAMETHOXAZOLE\TRIMETHOPRIM
     Indication: PROPHYLAXIS
     Route: 048
  7. PREDONINE [Suspect]
     Active Substance: PREDNISOLONE
     Indication: PUSTULAR PSORIASIS
     Route: 048
     Dates: start: 2005
  8. GASTER [Concomitant]
     Active Substance: FAMOTIDINE
     Indication: GASTRITIS
     Route: 048
  9. TRAMACET [Concomitant]
     Active Substance: ACETAMINOPHEN\TRAMADOL
     Indication: POLYMYALGIA RHEUMATICA
     Route: 048
     Dates: start: 201704
  10. ETRETINATE [Concomitant]
     Active Substance: ETRETINATE
     Indication: PUSTULAR PSORIASIS
     Route: 048
     Dates: start: 20170508
  11. REMICADE [Suspect]
     Active Substance: INFLIXIMAB
     Indication: PUSTULAR PSORIASIS
     Dosage: DISCONTINUED IN JAN-2017 OR FEB-2017
     Route: 042
     Dates: start: 20141210
  12. REMICADE [Suspect]
     Active Substance: INFLIXIMAB
     Indication: PUSTULAR PSORIASIS
     Dosage: 16TH DOSE
     Route: 042
     Dates: end: 201702

REACTIONS (6)
  - Anaemia [Unknown]
  - Mycobacterial infection [Recovering/Resolving]
  - Bone neoplasm [Unknown]
  - Colon cancer [Fatal]
  - Peritoneal perforation [Unknown]
  - Neoplasm [Unknown]

NARRATIVE: CASE EVENT DATE: 201702
